FAERS Safety Report 18409508 (Version 2)
Quarter: 2023Q2

REPORT INFORMATION
  Report Type: Spontaneous
  Country: US (occurrence: US)
  Receive Date: 20201021
  Receipt Date: 20230628
  Transmission Date: 20230722
  Serious: Yes (Other)
  Sender: FDA-Public Use
  Company Number: US-MLMSERVICE-20200925-2501150-1

PATIENT
  Age: 76 Year
  Sex: Female

DRUGS (16)
  1. OXALIPLATIN [Suspect]
     Active Substance: OXALIPLATIN
     Indication: Ductal adenocarcinoma of pancreas
     Dosage: UNK
     Route: 065
  2. OXALIPLATIN [Suspect]
     Active Substance: OXALIPLATIN
     Indication: Metastases to pelvis
  3. IRINOTECAN [Suspect]
     Active Substance: IRINOTECAN
     Indication: Ductal adenocarcinoma of pancreas
     Dosage: UNK
     Route: 065
  4. IRINOTECAN [Suspect]
     Active Substance: IRINOTECAN
     Indication: Metastases to pelvis
  5. LEUCOVORIN [Suspect]
     Active Substance: LEUCOVORIN
     Indication: Metastases to pelvis
     Dosage: UNK
     Route: 065
  6. LEUCOVORIN [Suspect]
     Active Substance: LEUCOVORIN
     Indication: Ductal adenocarcinoma of pancreas
  7. FLUOROURACIL [Suspect]
     Active Substance: FLUOROURACIL
     Indication: Ductal adenocarcinoma of pancreas
     Dosage: UNK
     Route: 065
  8. FLUOROURACIL [Suspect]
     Active Substance: FLUOROURACIL
     Indication: Metastases to pelvis
  9. GEMCITABINE [Suspect]
     Active Substance: GEMCITABINE
     Indication: Ductal adenocarcinoma of pancreas
     Dosage: UNK
     Route: 065
  10. GEMCITABINE [Suspect]
     Active Substance: GEMCITABINE
     Indication: Metastases to pelvis
  11. PACLITAXEL [Suspect]
     Active Substance: PACLITAXEL
     Indication: Ductal adenocarcinoma of pancreas
     Dosage: UNK
     Route: 065
  12. PACLITAXEL [Suspect]
     Active Substance: PACLITAXEL
     Indication: Metastases to pelvis
  13. ERLOTINIB [Suspect]
     Active Substance: ERLOTINIB
     Indication: Ductal adenocarcinoma of pancreas
     Dosage: 75 MILLIGRAM, ONCE A DAY
     Route: 065
  14. ERLOTINIB [Suspect]
     Active Substance: ERLOTINIB
     Indication: Metastases to pelvis
  15. OSIMERTINIB [Suspect]
     Active Substance: OSIMERTINIB
     Indication: Ductal adenocarcinoma of pancreas
     Dosage: 80 MILLIGRAM, ONCE A DAY
     Route: 065
  16. OSIMERTINIB [Suspect]
     Active Substance: OSIMERTINIB
     Indication: Metastases to pelvis

REACTIONS (4)
  - Thrombocytopenia [Unknown]
  - Myelosuppression [Unknown]
  - Drug intolerance [Unknown]
  - Diarrhoea [Unknown]
